FAERS Safety Report 5699307-X (Version None)
Quarter: 2008Q2

REPORT INFORMATION
  Report Type: 
  Country: None (occurrence: None)
  Receive Date: 20080404
  Receipt Date: 20080317
  Transmission Date: 20081010
  Serious: Yes (Other)
  Sender: FDA-Public Use
  Company Number: 2008SP005922

PATIENT
  Sex: Female

DRUGS (1)
  1. CORICIDIN HBP CHEST CONGESTION + COUGH (DEXTROMETHORPHAN HYDROBROMIDE/ [Suspect]
     Indication: COUGH
     Dosage: PO
     Route: 048
     Dates: start: 20080101

REACTIONS (2)
  - BRONCHITIS [None]
  - PNEUMONIA [None]
